FAERS Safety Report 7940344-X (Version None)
Quarter: 2011Q4

REPORT INFORMATION
  Report Type: 
  Country: None (occurrence: None)
  Receive Date: 20111127
  Receipt Date: 20110914
  Transmission Date: 20120403
  Serious: No
  Sender: FDA-Public Use
  Company Number: US-TEVA-296826USA

PATIENT
  Age: 4 Year
  Sex: Male

DRUGS (3)
  1. MOMETASONE FUROATE [Concomitant]
  2. BUDESONIDE [Suspect]
     Dosage: .25 MILLIGRAM;
     Route: 055
  3. CETIRIZINE HCL [Concomitant]

REACTIONS (1)
  - HICCUPS [None]
